FAERS Safety Report 6734762-5 (Version None)
Quarter: 2010Q2

REPORT INFORMATION
  Report Type: 
  Country: None (occurrence: None)
  Receive Date: 20100519
  Receipt Date: 20100519
  Transmission Date: 20101027
  Serious: Yes (Disabling)
  Sender: FDA-Public Use
  Company Number: None

PATIENT
  Sex: Male
  Weight: 69.4 kg

DRUGS (1)
  1. TAXUS LIBERTE [Suspect]

REACTIONS (3)
  - ACUTE MYOCARDIAL INFARCTION [None]
  - DEVICE OCCLUSION [None]
  - SURGICAL PROCEDURE REPEATED [None]
